FAERS Safety Report 15122792 (Version 3)
Quarter: 2019Q3

REPORT INFORMATION
  Report Type: Report from Study
  Country: US (occurrence: US)
  Receive Date: 20180709
  Receipt Date: 20190816
  Transmission Date: 20191004
  Serious: Yes (Hospitalization)
  Sender: FDA-Public Use
  Company Number: US-PFIZER INC-2018268427

PATIENT
  Age: 15 Year
  Sex: Male
  Weight: 91.8 kg

DRUGS (6)
  1. VINCRISTINE SULFATE. [Suspect]
     Active Substance: VINCRISTINE SULFATE
     Indication: HODGKIN^S DISEASE
     Dosage: 1.4 MG/M2 (MAX DOSE 2.8 MG) IV PUSH OVER 1 MIN OR INFUSION ON DAY 8
     Route: 042
     Dates: start: 20180323, end: 20180618
  2. BRENTUXIMAB VEDOTIN RECOMBINANT [Suspect]
     Active Substance: BRENTUXIMAB VEDOTIN
     Indication: HODGKIN^S DISEASE
     Dosage: 1.8 MG/KG/DOSE (MAX DOSE IS 180 MG) IV OVER 30 MIN ON DAY 1
     Route: 042
     Dates: start: 20180316, end: 20180611
  3. PREDNISONE. [Suspect]
     Active Substance: PREDNISONE
     Indication: HODGKIN^S DISEASE
     Dosage: 20 MG/M2/DOSE PO BID ON DAYS 1-7
     Route: 048
     Dates: start: 20180316, end: 20180619
  4. DOXORUBICIN HCL [Suspect]
     Active Substance: DOXORUBICIN HYDROCHLORIDE
     Indication: HODGKIN^S DISEASE
     Dosage: 25 MG/M2, OVER 1-5 MIN OR BY INTERMITTENT INFUSION OVER 1-15 MIN ON DAYS 1 AND 2
     Route: 040
     Dates: start: 20180316, end: 20180612
  5. CYCLOPHOSPHAMIDE. [Suspect]
     Active Substance: CYCLOPHOSPHAMIDE
     Indication: HODGKIN^S DISEASE
     Dosage: 600 MG/M2/DOSE IV OVER 30-60 MIN ON DAYS 1-2
     Route: 042
     Dates: start: 20180316, end: 20180612
  6. VP-16 [Suspect]
     Active Substance: ETOPOSIDE
     Indication: HODGKIN^S DISEASE
     Dosage: 125 MG/M2/DOSE IV OVER 60-120 MIN ON DAYS 1-3
     Route: 042
     Dates: start: 20180316, end: 20180613

REACTIONS (4)
  - Hypotension [Recovering/Resolving]
  - Pyrexia [Recovering/Resolving]
  - Sepsis [Recovering/Resolving]
  - Sinus tachycardia [Recovering/Resolving]

NARRATIVE: CASE EVENT DATE: 20180619
